FAERS Safety Report 18013087 (Version 1)
Quarter: 2020Q3

REPORT INFORMATION
  Report Type: Spontaneous
  Country: US (occurrence: US)
  Receive Date: 20200710
  Receipt Date: 20200710
  Transmission Date: 20201103
  Serious: Yes (Hospitalization)
  Sender: FDA-Public Use
  Company Number: None

PATIENT
  Age: 73 Year
  Sex: Male
  Weight: 94.05 kg

DRUGS (16)
  1. LISINOPRIL 20 MG [Concomitant]
     Active Substance: LISINOPRIL
  2. BUDESONIDE 0.25MG/2ML [Concomitant]
  3. CEFUROXIME 500 MG [Concomitant]
     Active Substance: CEFUROXIME
  4. OMEPRAZOLE 20 MG [Concomitant]
     Active Substance: OMEPRAZOLE
  5. SYMBICORT 160?4.5 MCG/ACT [Concomitant]
  6. OXYCODONE 30 MG [Concomitant]
     Active Substance: OXYCODONE
  7. CITALOPRAM [Concomitant]
     Active Substance: CITALOPRAM HYDROBROMIDE
  8. DOXYCYCLINE. [Concomitant]
     Active Substance: DOXYCYCLINE
  9. LORATIDINE 10 MG [Concomitant]
  10. FUROSEMIDE 40 MG [Concomitant]
     Active Substance: FUROSEMIDE
  11. TRAZODONE 50 MCG [Concomitant]
  12. XARELTO [Concomitant]
     Active Substance: RIVAROXABAN
  13. CAPECITABINE. [Suspect]
     Active Substance: CAPECITABINE
     Indication: BILE DUCT CANCER
     Route: 048
     Dates: start: 20200417, end: 20200614
  14. IPRATROMIUM?ALBUTEROL 0.5?2.5 (3) MG/ML [Concomitant]
  15. POTASSIUM CHLORIDE ER 10 MEQ [Concomitant]
  16. SPIRIVA 18 MCG/INH [Concomitant]

REACTIONS (1)
  - Overdose [None]

NARRATIVE: CASE EVENT DATE: 20200614
